FAERS Safety Report 15596553 (Version 2)
Quarter: 2018Q4

REPORT INFORMATION
  Report Type: Spontaneous
  Country: KR (occurrence: KR)
  Receive Date: 20181108
  Receipt Date: 20181112
  Transmission Date: 20190205
  Serious: Yes (Other)
  Sender: FDA-Public Use
  Company Number: KR-ROCHE-2211297

PATIENT
  Age: 74 Year
  Sex: Female

DRUGS (1)
  1. LUCENTIS [Suspect]
     Active Substance: RANIBIZUMAB
     Indication: NEOVASCULAR AGE-RELATED MACULAR DEGENERATION
     Dosage: 0.5 ML, UNK
     Route: 065
     Dates: start: 201301

REACTIONS (3)
  - Cataract [Unknown]
  - Disease recurrence [Unknown]
  - Maculopathy [Recovered/Resolved]

NARRATIVE: CASE EVENT DATE: 201607
